FAERS Safety Report 14258641 (Version 1)
Quarter: 2017Q4

REPORT INFORMATION
  Report Type: Spontaneous
  Country: US (occurrence: US)
  Receive Date: 20171207
  Receipt Date: 20171207
  Transmission Date: 20180321
  Serious: No
  Sender: FDA-Public Use
  Company Number: US-009507513-1711USA007946

PATIENT
  Age: 20 Year
  Sex: Female
  Weight: 68.03 kg

DRUGS (2)
  1. ERYTHROMYCIN. [Concomitant]
     Active Substance: ERYTHROMYCIN
     Dosage: UNK
  2. NEXPLANON [Suspect]
     Active Substance: ETONOGESTREL
     Indication: CONTRACEPTION
     Dosage: LEFT ARM IMPLANT, EVERY 3YEARS
     Route: 059
     Dates: start: 20160916

REACTIONS (2)
  - Menstrual disorder [Unknown]
  - Headache [Unknown]

NARRATIVE: CASE EVENT DATE: 201711
